FAERS Safety Report 6761398-2 (Version None)
Quarter: 2010Q2

REPORT INFORMATION
  Report Type: 
  Country: None (occurrence: None)
  Receive Date: 20100608
  Receipt Date: 20100528
  Transmission Date: 20101027
  Serious: Yes (Hospitalization)
  Sender: FDA-Public Use
  Company Number: ZA-ROCHE-411013

PATIENT
  Sex: Male
  Weight: 90 kg

DRUGS (11)
  1. BEVACIZUMAB [Suspect]
     Dosage: PERMANENTLY DISCONTINUED. FORM REPORTED: VIALS.
     Route: 042
     Dates: start: 20050701, end: 20050707
  2. OXALIPLATIN [Suspect]
     Dosage: DATE OF LAST DOSE PRIOR TO SAE WAS 06 JULY 2005. PERMANANTLY DISCONTINUED. FORM REPORTED: VIALS.
     Route: 042
     Dates: start: 20050701, end: 20050707
  3. LEUCOVORIN [Suspect]
     Dosage: DATE OF LAST DOSE PRIOR TO SAE WAS REPORTED AS 07 JULY 2005. FORM REPORTED: VIALS.
     Route: 042
     Dates: start: 20050706, end: 20050707
  4. FLUOROURACIL [Suspect]
     Dosage: 824MG BOLUS INJECTION AND 1236MG CONTINUOUS INFUSION, BOTH GIVEN ON DAYS 1 AND 2 OF EACH TWO WEEK C+
     Route: 042
     Dates: start: 20050706, end: 20050709
  5. NEXIUM [Concomitant]
     Dates: start: 20050714, end: 20050715
  6. ANDOLEX [Concomitant]
     Route: 002
     Dates: start: 20050714, end: 20050715
  7. MYCOSTATIN [Concomitant]
     Dates: start: 20050714, end: 20050715
  8. MAXIPIME [Concomitant]
     Dates: start: 20050620, end: 20050729
  9. ALITRAQ [Concomitant]
     Dates: start: 20050618, end: 20050728
  10. FRESENIUS ENERGAN [Concomitant]
     Dates: start: 20050615, end: 20050729
  11. TAZOCIN [Concomitant]
     Dates: start: 20050715, end: 20050720

REACTIONS (2)
  - CHOLECYSTITIS [None]
  - RECTAL PERFORATION [None]
